FAERS Safety Report 7105470-6 (Version None)
Quarter: 2010Q4

REPORT INFORMATION
  Report Type: 
  Country: None (occurrence: None)
  Receive Date: 20101116
  Receipt Date: 20101104
  Transmission Date: 20110411
  Serious: Yes (Hospitalization)
  Sender: FDA-Public Use
  Company Number: US-SANOFI-AVENTIS-2010SA068019

PATIENT
  Sex: Female
  Weight: 43 kg

DRUGS (6)
  1. PLAVIX [Suspect]
     Route: 048
     Dates: start: 20101001
  2. PLAVIX [Suspect]
     Route: 048
     Dates: start: 20101001
  3. ASPIRIN [Suspect]
     Indication: STENT PLACEMENT
     Route: 048
     Dates: start: 20101001
  4. ASPIRIN [Suspect]
     Route: 048
     Dates: start: 20101001
  5. COUMADIN [Suspect]
     Indication: STENT PLACEMENT
     Dates: start: 20101001
  6. COUMADIN [Suspect]
     Dates: start: 20101001

REACTIONS (1)
  - ATRIAL FIBRILLATION [None]
